FAERS Safety Report 18204672 (Version 1)
Quarter: 2020Q3

REPORT INFORMATION
  Report Type: Spontaneous
  Country: US (occurrence: US)
  Receive Date: 20200827
  Receipt Date: 20200827
  Transmission Date: 20201103
  Serious: Yes (Death)
  Sender: FDA-Public Use
  Company Number: US-TEVA-2020-US-1819558

PATIENT
  Sex: Male

DRUGS (1)
  1. TRAMADOL. [Suspect]
     Active Substance: TRAMADOL
     Route: 065

REACTIONS (5)
  - Chest pain [Unknown]
  - Myocardial infarction [Fatal]
  - Hypertension [Unknown]
  - Sexual dysfunction [Unknown]
  - Rash [Unknown]
